FAERS Safety Report 11862827 (Version 1)
Quarter: 2015Q4

REPORT INFORMATION
  Report Type: Report from Study
  Country: US (occurrence: US)
  Receive Date: 20151223
  Receipt Date: 20151223
  Transmission Date: 20160305
  Serious: No
  Sender: FDA-Public Use
  Company Number: US-AMGEN-USASP2015134764

PATIENT
  Age: 21 Year
  Sex: Female

DRUGS (1)
  1. ENBREL [Suspect]
     Active Substance: ETANERCEPT
     Indication: RHEUMATOID ARTHRITIS
     Dosage: 50 MG, UNK
     Route: 065
     Dates: start: 20010101

REACTIONS (10)
  - Injection site erythema [Unknown]
  - Off label use [Unknown]
  - Fear of injection [Unknown]
  - Injection site pain [Unknown]
  - Wrong technique in product usage process [Unknown]
  - Underdose [Unknown]
  - Crying [Unknown]
  - Injection site pruritus [Unknown]
  - Injection site extravasation [Unknown]
  - Arthralgia [Unknown]
